FAERS Safety Report 9643143 (Version 2)
Quarter: 2013Q4

REPORT INFORMATION
  Report Type: Spontaneous
  Country: JP (occurrence: JP)
  Receive Date: 20131024
  Receipt Date: 20131024
  Transmission Date: 20140711
  Serious: Yes (Hospitalization)
  Sender: FDA-Public Use
  Company Number: JP-PFIZER INC-2013211630

PATIENT
  Age: 85 Year
  Sex: Male

DRUGS (4)
  1. AMLODIN [Suspect]
     Dosage: 10 MG, DAILY
     Route: 048
     Dates: start: 20130603, end: 20130613
  2. NATRIX [Suspect]
     Dosage: 1 MG, UNK
     Route: 048
     Dates: start: 20130603, end: 20130613
  3. TRAZENTA [Suspect]
     Dosage: 5 MG, UNK
     Route: 048
     Dates: start: 20130603, end: 20130613
  4. NU LOTAN [Concomitant]
     Dosage: UNK
     Route: 048

REACTIONS (2)
  - Erythema multiforme [Recovering/Resolving]
  - Drug eruption [Recovering/Resolving]
